FAERS Safety Report 9804142 (Version 4)
Quarter: 2014Q4

REPORT INFORMATION
  Report Type: Spontaneous
  Country: US (occurrence: None)
  Receive Date: 20140106
  Receipt Date: 20141120
  Transmission Date: 20150529
  Serious: Yes (Hospitalization, Other)
  Sender: FDA-Public Use
  Company Number: ADR-2014-00003

PATIENT
  Age: 49 Year
  Sex: Female

DRUGS (4)
  1. BACLOFEN. [Suspect]
     Active Substance: BACLOFEN
     Indication: MUSCLE SPASTICITY
     Dosage: SEE B5
     Route: 037
     Dates: end: 20131230
  2. DILAUDID [Suspect]
     Active Substance: HYDROMORPHONE HYDROCHLORIDE
     Route: 037
  3. MORPHINE INTRATHECAL [Suspect]
     Active Substance: MORPHINE
  4. LIORESAL [Suspect]
     Active Substance: BACLOFEN
     Indication: MUSCLE SPASTICITY
     Dosage: 986.2 MCG/DAY (SEE B5)
     Dates: start: 20131230

REACTIONS (15)
  - Device leakage [None]
  - Drug ineffective [None]
  - Pain [None]
  - Hallucination, auditory [None]
  - Accidental overdose [None]
  - Medical device complication [None]
  - Vertigo [None]
  - Wrong drug administered [None]
  - Neuropathy peripheral [None]
  - Urinary incontinence [None]
  - Visual acuity reduced [None]
  - Balance disorder [None]
  - Brain injury [None]
  - Nystagmus [None]
  - Gait disturbance [None]

NARRATIVE: CASE EVENT DATE: 20131217
